FAERS Safety Report 20517535 (Version 13)
Quarter: 2022Q3

REPORT INFORMATION
  Report Type: Report from Study
  Country: HR (occurrence: None)
  Receive Date: 20220225
  Receipt Date: 20220805
  Transmission Date: 20221026
  Serious: Yes (Hospitalization)
  Sender: FDA-Public Use
  Company Number: HR-Eisai Medical Research-EC-2022-109363

PATIENT
  Age: 51 Year
  Sex: Female
  Weight: 80 kg

DRUGS (12)
  1. LENVATINIB [Suspect]
     Active Substance: LENVATINIB
     Indication: Clear cell renal cell carcinoma
     Route: 048
     Dates: start: 20220208, end: 20220219
  2. QUAVONLIMAB [Suspect]
     Active Substance: QUAVONLIMAB
     Indication: Clear cell renal cell carcinoma
     Dosage: MK-1308 A 425MG (QUAVONLIMAB (MK-1308) 25 MG PLUS PEMBROLIZUMAB (MK-3475) 400MG
     Route: 042
     Dates: start: 20220208, end: 20220208
  3. QUAVONLIMAB [Suspect]
     Active Substance: QUAVONLIMAB
     Dosage: MK-1308 A 425MG (QUAVONLIMAB (MK-1308) 25 MG PLUS PEMBROLIZUMAB (MK-3475) 400MG
     Route: 042
     Dates: start: 20220322, end: 20220322
  4. NEBIVOLOL HYDROCHLORIDE [Concomitant]
     Active Substance: NEBIVOLOL HYDROCHLORIDE
     Dates: start: 201906
  5. CORTEF [Concomitant]
     Active Substance: HYDROCORTISONE
     Dates: start: 201908
  6. FLUDROCORTISONE [Concomitant]
     Active Substance: FLUDROCORTISONE
     Dates: start: 201908
  7. AMLODIPINE\INDAPAMIDE\PERINDOPRIL [Concomitant]
     Active Substance: AMLODIPINE\INDAPAMIDE\PERINDOPRIL
     Dates: start: 202106
  8. MOXONIDINE [Concomitant]
     Active Substance: MOXONIDINE
     Dates: start: 20220215
  9. BILASTINE [Concomitant]
     Active Substance: BILASTINE
     Dates: start: 20220218, end: 20220614
  10. BELODERM [BETAMETHASONE DIPROPIONATE] [Concomitant]
     Dates: start: 20220218, end: 20220614
  11. PEMBROLIZUMAB [Suspect]
     Active Substance: PEMBROLIZUMAB
  12. PEMBROLIZUMAB [Suspect]
     Active Substance: PEMBROLIZUMAB

REACTIONS (1)
  - Thrombocytopenia [Recovered/Resolved]

NARRATIVE: CASE EVENT DATE: 20220219
